FAERS Safety Report 24246696 (Version 1)
Quarter: 2024Q3

REPORT INFORMATION
  Report Type: Spontaneous
  Country: ZA (occurrence: None)
  Receive Date: 20240825
  Receipt Date: 20240825
  Transmission Date: 20241017
  Serious: Yes (Hospitalization, Other)
  Sender: ASTRAZENECA
  Company Number: 2024A192067

PATIENT
  Age: 76 Year
  Sex: Male

DRUGS (9)
  1. DAPAGLIFLOZIN PROPANEDIOL [Suspect]
     Active Substance: DAPAGLIFLOZIN PROPANEDIOL
     Route: 048
  2. LIPOGEN [Concomitant]
  3. BISOPROLOL FUMARATE [Concomitant]
     Active Substance: BISOPROLOL FUMARATE
  4. FUROSEMIDE [Concomitant]
     Active Substance: FUROSEMIDE
  5. SPIRACTIN [Concomitant]
  6. ZOPICLONE [Concomitant]
     Active Substance: ZOPICLONE
  7. ASPIRIN [Concomitant]
     Active Substance: ASPIRIN
  8. APIXABAN [Concomitant]
     Active Substance: APIXABAN
  9. LANOXIN [Concomitant]
     Active Substance: DIGOXIN

REACTIONS (1)
  - Cardiac failure [Unknown]
